FAERS Safety Report 7911484-6 (Version None)
Quarter: 2011Q4

REPORT INFORMATION
  Report Type: 
  Country: None (occurrence: None)
  Receive Date: 20111114
  Receipt Date: 20111104
  Transmission Date: 20120403
  Serious: Yes (Other)
  Sender: FDA-Public Use
  Company Number: SE-US-EMD SERONO, INC.-7066782

PATIENT
  Sex: Female

DRUGS (1)
  1. REBIF [Suspect]
     Indication: RELAPSING-REMITTING MULTIPLE SCLEROSIS
     Route: 058
     Dates: start: 20070323

REACTIONS (3)
  - GLAUCOMA [None]
  - HERPES ZOSTER [None]
  - HERPES ZOSTER OPHTHALMIC [None]
